FAERS Safety Report 18900512 (Version 2)
Quarter: 2021Q3

REPORT INFORMATION
  Report Type: Spontaneous
  Country: US (occurrence: US)
  Receive Date: 20210216
  Receipt Date: 20210727
  Transmission Date: 20211014
  Serious: Yes (Other)
  Sender: FDA-Public Use
  Company Number: US-TEVA-2021-US-1879753

PATIENT
  Age: 3 Decade
  Sex: Female

DRUGS (1)
  1. TRIAMCINOLONE [Suspect]
     Active Substance: TRIAMCINOLONE
     Indication: PRODUCT USED FOR UNKNOWN INDICATION
     Dosage: 1 ML INJECTION OF 40 MG/ML
     Route: 030

REACTIONS (1)
  - Injection site atrophy [Recovered/Resolved]
